FAERS Safety Report 9667632 (Version 2)
Quarter: 2013Q4

REPORT INFORMATION
  Report Type: Spontaneous
  Country: US (occurrence: US)
  Receive Date: 20131104
  Receipt Date: 20131122
  Transmission Date: 20140711
  Serious: Yes (Other)
  Sender: FDA-Public Use
  Company Number: US-PFIZER INC-2013310389

PATIENT
  Sex: Male

DRUGS (1)
  1. ZOLOFT [Suspect]
     Dosage: UNK

REACTIONS (5)
  - Diabetes mellitus [Unknown]
  - Hypoaesthesia [Unknown]
  - Pain [Unknown]
  - Local swelling [Unknown]
  - Cardiac disorder [Unknown]
